FAERS Safety Report 4522743-1 (Version None)
Quarter: 2004Q4

REPORT INFORMATION
  Report Type: 
  Country: None (occurrence: None)
  Receive Date: 20041207
  Receipt Date: 20041130
  Transmission Date: 20050328
  Serious: Yes (Hospitalization)
  Sender: FDA-Public Use
  Company Number: 2004-113373-NL

PATIENT
  Age: 60 Year
  Sex: Male

DRUGS (13)
  1. DANAPAROID SODIUM [Suspect]
     Indication: DISSEMINATED INTRAVASCULAR COAGULATION
     Dosage: 2500 ANTI XA  INTRAVENOUS (NOS)
     Route: 042
  2. OMEPRAZOLE [Concomitant]
  3. URINASTATIN [Concomitant]
  4. GABEXATE MESILATE [Concomitant]
  5. TIENAM [Concomitant]
  6. NAFAMOSTAT MESILATE [Concomitant]
  7. ANTITHROMBIN III [Concomitant]
  8. NITRAZEPAM [Concomitant]
  9. DOBUTAMINE HCL [Concomitant]
  10. BUPRENORPHINE HCL [Concomitant]
  11. INSULIN HUMAN [Concomitant]
  12. IMMUNE GLOBULIN INTRAVENOUS (HUMAN) [Concomitant]
  13. OMEGA [Concomitant]

REACTIONS (16)
  - ACTIVATED PARTIAL THROMBOPLASTIN TIME ABNORMAL [None]
  - BLOOD FIBRINOGEN INCREASED [None]
  - BLOOD LACTATE DEHYDROGENASE INCREASED [None]
  - COAGULOPATHY [None]
  - CONDITION AGGRAVATED [None]
  - DRUG INEFFECTIVE [None]
  - FIBRIN D DIMER INCREASED [None]
  - FIBRIN DEGRADATION PRODUCTS INCREASED [None]
  - GASTROINTESTINAL HAEMORRHAGE [None]
  - HAEMATOCRIT ABNORMAL [None]
  - HAEMOGLOBIN ABNORMAL [None]
  - PLATELET COUNT ABNORMAL [None]
  - PROTHROMBIN TIME ABNORMAL [None]
  - RED BLOOD CELL ABNORMALITY [None]
  - THROMBIN-ANTITHROMBIN III COMPLEX ABNORMAL [None]
  - WHITE BLOOD CELL COUNT INCREASED [None]
